FAERS Safety Report 7271230-9 (Version None)
Quarter: 2011Q1

REPORT INFORMATION
  Report Type: 
  Country: None (occurrence: None)
  Receive Date: 20110202
  Receipt Date: 20110126
  Transmission Date: 20110831
  Serious: Yes (Hospitalization)
  Sender: FDA-Public Use
  Company Number: JP-SANOFI-AVENTIS-2010SA068413

PATIENT
  Age: 76 Year
  Sex: Male
  Weight: 59.7 kg

DRUGS (7)
  1. PLAVIX [Suspect]
     Route: 048
     Dates: start: 20090715
  2. ASPIRIN [Concomitant]
     Indication: ANGINA UNSTABLE
     Route: 048
     Dates: start: 20090630
  3. BLOPRESS [Concomitant]
     Indication: HYPERTENSION
     Route: 048
     Dates: start: 20090715
  4. BEZAFIBRATE [Concomitant]
     Indication: HYPERLIPIDAEMIA
     Route: 048
     Dates: start: 20100703
  5. ROSUVASTATIN CALCIUM [Concomitant]
     Indication: HYPERLIPIDAEMIA
     Route: 048
     Dates: start: 20100513
  6. PLAVIX [Suspect]
     Indication: ANGINA UNSTABLE
     Route: 048
     Dates: start: 20090714, end: 20090714
  7. LOCHOL [Concomitant]
     Indication: HYPERLIPIDAEMIA
     Route: 048
     Dates: start: 20090630, end: 20100512

REACTIONS (1)
  - IN-STENT CORONARY ARTERY RESTENOSIS [None]
